FAERS Safety Report 16949685 (Version 1)
Quarter: 2019Q4

REPORT INFORMATION
  Report Type: Spontaneous
  Country: ES (occurrence: ES)
  Receive Date: 20191023
  Receipt Date: 20191023
  Transmission Date: 20200122
  Serious: Yes (Hospitalization)
  Sender: FDA-Public Use
  Company Number: ES-TEVA-2019-ES-1126008

PATIENT
  Age: 71 Year
  Sex: Female
  Weight: 81 kg

DRUGS (2)
  1. PREDNISONA (886A) [Suspect]
     Active Substance: PREDNISONE
     Dosage: 5MG/ DAY
     Route: 048
     Dates: start: 2017
  2. STELARA [Interacting]
     Active Substance: USTEKINUMAB
     Indication: PSORIASIS
     Dosage: 90MG/ 12 WEEK
     Route: 058
     Dates: start: 20170217

REACTIONS (2)
  - Drug interaction [Unknown]
  - Pneumonia [Recovered/Resolved]

NARRATIVE: CASE EVENT DATE: 20190917
